FAERS Safety Report 24837347 (Version 9)
Quarter: 2025Q4

REPORT INFORMATION
  Report Type: Spontaneous
  Country: MY (occurrence: MY)
  Receive Date: 20250113
  Receipt Date: 20251030
  Transmission Date: 20260118
  Serious: Yes (Hospitalization)
  Sender: INCYTE
  Company Number: MY-INCYTE CORPORATION-2025IN000222

PATIENT
  Age: 78 Year
  Weight: 71 kg

DRUGS (10)
  1. RUXOLITINIB [Suspect]
     Active Substance: RUXOLITINIB
     Indication: Myelofibrosis
     Dosage: 10 MG, BID
  2. RUXOLITINIB [Suspect]
     Active Substance: RUXOLITINIB
     Dosage: 5 MG, BID
  3. RUXOLITINIB [Suspect]
     Active Substance: RUXOLITINIB
     Dosage: 5 MG, BID
  4. PELABRESIB [Suspect]
     Active Substance: PELABRESIB
     Indication: Myelofibrosis
     Dosage: 75 MG, QD
  5. PELABRESIB [Suspect]
     Active Substance: PELABRESIB
     Dosage: 50 MG, QD
  6. ACYCLOVIR [Concomitant]
     Active Substance: ACYCLOVIR
     Indication: Prophylaxis
     Dosage: 400 MG, BID
  7. CARDIPRIN [ACETYLSALICYLIC ACID] [Concomitant]
     Indication: Antiplatelet therapy
     Dosage: 100 MG, QD (DAILY)
  8. ATORVASTATIN CALCIUM [ATORVASTATIN CALCIUM PROPYLENE GLYCOL SOLVATE] [Concomitant]
     Indication: Lipids decreased
     Dosage: 40 MG, ONCE
  9. FOLATE SODIUM [Concomitant]
     Active Substance: FOLATE SODIUM
     Indication: Supplementation therapy
     Dosage: 5 MG, QD (DAILY)
  10. NEUROBION [PYRIDOXINE HYDROCHLORIDE;THIAMINE HYDROCHLORIDE] [Concomitant]
     Indication: Supplementation therapy
     Dosage: 1 DOSAGE FORM, QD

REACTIONS (2)
  - Pneumonia [Recovered/Resolved]
  - Pneumonia [Recovered/Resolved]
